FAERS Safety Report 23681914 (Version 1)
Quarter: 2024Q1

REPORT INFORMATION
  Report Type: Other
  Country: CA (occurrence: CA)
  Receive Date: 20240328
  Receipt Date: 20240328
  Transmission Date: 20240410
  Serious: Yes (Death)
  Sender: FDA-Public Use
  Company Number: CA-APOTEX-2024AP003963

PATIENT
  Sex: Male

DRUGS (1)
  1. PEGFILGRASTIM [Suspect]
     Active Substance: PEGFILGRASTIM
     Indication: Gastric cancer
     Dosage: UNK (6MG/0.6ML X 1 DOSE X 7 CYCLES)
     Route: 058
     Dates: start: 20231018

REACTIONS (1)
  - Post procedural complication [Fatal]
